FAERS Safety Report 16882884 (Version 2)
Quarter: 2019Q4

REPORT INFORMATION
  Report Type: Spontaneous
  Country: US (occurrence: US)
  Receive Date: 20191004
  Receipt Date: 20191021
  Transmission Date: 20200122
  Serious: Yes (Other)
  Sender: FDA-Public Use
  Company Number: US-BEH-2019107557

PATIENT
  Age: 8 Week
  Weight: 2.93 kg

DRUGS (2)
  1. RHOPHYLAC [Suspect]
     Active Substance: HUMAN RHO(D) IMMUNE GLOBULIN
     Indication: RHESUS INCOMPATIBILITY
     Dosage: APPROX. 30 MILLILITER, TOT
     Route: 064
     Dates: end: 20190526
  2. RHOPHYLAC [Suspect]
     Active Substance: HUMAN RHO(D) IMMUNE GLOBULIN
     Indication: RHESUS INCOMPATIBILITY
     Dosage: APPROX. 30 MILLILITER, TOT
     Route: 064
     Dates: end: 20190526

REACTIONS (4)
  - Coombs direct test positive [Recovered/Resolved]
  - Haemolysis [Recovered/Resolved]
  - Maternal exposure timing unspecified [Recovered/Resolved]
  - Blood bilirubin increased [Recovered/Resolved]

NARRATIVE: CASE EVENT DATE: 20190731
